FAERS Safety Report 16594419 (Version 1)
Quarter: 2019Q3

REPORT INFORMATION
  Report Type: Spontaneous
  Country: US (occurrence: US)
  Receive Date: 20190718
  Receipt Date: 20190718
  Transmission Date: 20191004
  Serious: Yes (Death, Hospitalization)
  Sender: FDA-Public Use
  Company Number: US-IBSA PHARMA-TIR-2019-0605

PATIENT
  Age: 50 Year
  Sex: Female

DRUGS (1)
  1. LEVOTHYROXINE. [Suspect]
     Active Substance: LEVOTHYROXINE
     Indication: HYPOTHYROIDISM

REACTIONS (7)
  - Hyperthyroidism [Fatal]
  - Nodal rhythm [Fatal]
  - Brain death [Fatal]
  - Supraventricular tachycardia [Fatal]
  - Cardiac arrest [Fatal]
  - Brain injury [Fatal]
  - Drug abuse [Fatal]
